FAERS Safety Report 4318414-7 (Version None)
Quarter: 2004Q1

REPORT INFORMATION
  Report Type: 
  Country: None (occurrence: None)
  Receive Date: 20040315
  Receipt Date: 20040304
  Transmission Date: 20041129
  Serious: Yes (Hospitalization)
  Sender: FDA-Public Use
  Company Number: NL-JNJFOC-20040301151

PATIENT
  Sex: Female

DRUGS (1)
  1. DUROGESIC (FENTANYL) PATCH [Suspect]
     Indication: PAIN
     Dosage: 25 UG/HR, 5 IN 1 TOTAL, TRANSDERMAL
     Route: 062

REACTIONS (3)
  - ASPIRATION [None]
  - COMA [None]
  - SOPOR [None]
